FAERS Safety Report 5895441-X (Version None)
Quarter: 2008Q3

REPORT INFORMATION
  Report Type: 
  Country: None (occurrence: None)
  Receive Date: 20080924
  Receipt Date: 20080919
  Transmission Date: 20090109
  Serious: Yes (Other)
  Sender: FDA-Public Use
  Company Number: JP-AVENTIS-200812964JP

PATIENT
  Age: 30 Year
  Sex: Female

DRUGS (2)
  1. ALLEGRA [Suspect]
     Route: 048
     Dates: start: 20050701, end: 20050701
  2. UNKNOWN DRUG [Suspect]
     Dates: start: 20050701, end: 20050701

REACTIONS (1)
  - LIVER DISORDER [None]
